FAERS Safety Report 21853868 (Version 1)
Quarter: 2023Q1

REPORT INFORMATION
  Report Type: Spontaneous
  Country: US (occurrence: None)
  Receive Date: 20230111
  Receipt Date: 20230111
  Transmission Date: 20230418
  Serious: No
  Sender: FDA-Public Use
  Company Number: None

PATIENT
  Sex: Male
  Weight: 104.33 kg

DRUGS (3)
  1. WELIREG [Suspect]
     Active Substance: BELZUTIFAN
     Indication: Metastases to central nervous system
     Dosage: FREQUENCY : DAILY;?
     Route: 048
  2. FENTANYL [Concomitant]
     Active Substance: FENTANYL
  3. ZOFRAN [Concomitant]
     Active Substance: ONDANSETRON HYDROCHLORIDE

REACTIONS (1)
  - Drug ineffective [None]
